FAERS Safety Report 10101557 (Version 1)
Quarter: 2014Q2

REPORT INFORMATION
  Report Type: Spontaneous
  Country: US (occurrence: US)
  Receive Date: 20140424
  Receipt Date: 20140424
  Transmission Date: 20141212
  Serious: Yes (Death, Life-Threatening, Other)
  Sender: FDA-Public Use
  Company Number: US-JNJFOC-20140407091

PATIENT
  Sex: 0

DRUGS (10)
  1. DOXORUBICIN [Suspect]
     Indication: NATURAL KILLER-CELL LYMPHOBLASTIC LYMPHOMA
     Route: 042
  2. DOXORUBICIN [Suspect]
     Indication: PERIPHERAL T-CELL LYMPHOMA UNSPECIFIED
     Route: 042
  3. CYCLOPHOSPHAMIDE [Suspect]
     Indication: NATURAL KILLER-CELL LYMPHOBLASTIC LYMPHOMA
     Route: 065
  4. CYCLOPHOSPHAMIDE [Suspect]
     Indication: PERIPHERAL T-CELL LYMPHOMA UNSPECIFIED
     Route: 065
  5. VINCRISTINE [Suspect]
     Indication: NATURAL KILLER-CELL LYMPHOBLASTIC LYMPHOMA
     Route: 065
  6. VINCRISTINE [Suspect]
     Indication: PERIPHERAL T-CELL LYMPHOMA UNSPECIFIED
     Route: 065
  7. PREDNISONE [Suspect]
     Indication: NATURAL KILLER-CELL LYMPHOBLASTIC LYMPHOMA
     Dosage: DAYS 1-5
     Route: 048
  8. PREDNISONE [Suspect]
     Indication: PERIPHERAL T-CELL LYMPHOMA UNSPECIFIED
     Dosage: DAYS 1-5
     Route: 048
  9. BEVACIZUMAB [Suspect]
     Indication: NATURAL KILLER-CELL LYMPHOBLASTIC LYMPHOMA
     Dosage: DAY 1
     Route: 065
  10. BEVACIZUMAB [Suspect]
     Indication: PERIPHERAL T-CELL LYMPHOMA UNSPECIFIED
     Dosage: DAY 1
     Route: 065

REACTIONS (20)
  - Non-Hodgkin^s lymphoma [Fatal]
  - Peripheral T-cell lymphoma unspecified [Fatal]
  - Metastases to breast [Unknown]
  - Toxicity to various agents [Unknown]
  - Ventricular arrhythmia [Unknown]
  - Neutropenia [Unknown]
  - Febrile neutropenia [Unknown]
  - Anaemia [Unknown]
  - Thrombocytopenia [Unknown]
  - Ejection fraction decreased [Unknown]
  - Hypertension [Unknown]
  - Restrictive cardiomyopathy [Unknown]
  - Venous thrombosis [Unknown]
  - Gastrointestinal haemorrhage [Unknown]
  - Large intestine perforation [Unknown]
  - Fatigue [Unknown]
  - Infection [Unknown]
  - Basal cell carcinoma [Unknown]
  - Gastrointestinal carcinoma [Unknown]
  - Renal cancer [Unknown]
